FAERS Safety Report 20032200 (Version 1)
Quarter: 2021Q4

REPORT INFORMATION
  Report Type: Spontaneous
  Country: RU (occurrence: RU)
  Receive Date: 20211103
  Receipt Date: 20211103
  Transmission Date: 20220303
  Serious: Yes (Other)
  Sender: FDA-Public Use
  Company Number: RU-SA-2021SA360203

PATIENT
  Age: 45 Year
  Sex: Female
  Weight: 67 kg

DRUGS (3)
  1. APIDRA [Suspect]
     Active Substance: INSULIN GLULISINE
     Indication: Type 1 diabetes mellitus
     Dosage: 36 IU, QD
     Route: 058
     Dates: start: 20210921, end: 20211020
  2. INSULIN ASPART [Suspect]
     Active Substance: INSULIN ASPART
     Indication: Type 1 diabetes mellitus
     Dosage: 36 IU, QD
     Route: 058
     Dates: start: 20211021, end: 20211025
  3. INSULIN ASPART [Suspect]
     Active Substance: INSULIN ASPART
     Indication: Type 1 diabetes mellitus
     Dosage: 36 IU, QD
     Route: 058
     Dates: start: 20210721, end: 20210820

REACTIONS (4)
  - Lipohypertrophy [Recovering/Resolving]
  - Blood pressure increased [Recovering/Resolving]
  - Blood glucose fluctuation [Recovering/Resolving]
  - Injection site pain [Recovering/Resolving]

NARRATIVE: CASE EVENT DATE: 20210101
